FAERS Safety Report 5233306-7 (Version None)
Quarter: 2007Q1

REPORT INFORMATION
  Report Type: 
  Country: None (occurrence: None)
  Receive Date: 20070206
  Receipt Date: 20070122
  Transmission Date: 20070707
  Serious: Yes (Hospitalization, Other)
  Sender: FDA-Public Use
  Company Number: 2007S1000775

PATIENT
  Age: 48 Year
  Sex: Male

DRUGS (7)
  1. ACAMPROSATE CALCIUM [Suspect]
     Indication: ALCOHOL USE
     Dosage: 666 MG;3 TIMES A DAY; ORAL
     Route: 048
     Dates: start: 20061128, end: 20061209
  2. ACAMPROSATE CALCIUM [Suspect]
     Indication: PROPHYLAXIS
     Dosage: 666 MG;3 TIMES A DAY; ORAL
     Route: 048
     Dates: start: 20061128, end: 20061209
  3. ALPRAZOLAM [Suspect]
     Indication: ANXIETY
     Dosage: 0.5 MG; 3 TIMES A DAY; ORAL
     Route: 048
     Dates: start: 20061204, end: 20061209
  4. VENLAFAXINE HYDROCHLORIDE [Concomitant]
  5. LEVOTHYROXINE SODIUM [Concomitant]
  6. BUSPIRONE HCL [Concomitant]
  7. VENLAFAXINE HYDROCHLORIDE [Concomitant]

REACTIONS (3)
  - ABNORMAL BEHAVIOUR [None]
  - HOMICIDAL IDEATION [None]
  - HYPERSENSITIVITY [None]
